FAERS Safety Report 4579162-1 (Version None)
Quarter: 2005Q1

REPORT INFORMATION
  Report Type: 
  Country: None (occurrence: None)
  Receive Date: 20050208
  Receipt Date: 20050208
  Transmission Date: 20050727
  Serious: Yes (Other)
  Sender: FDA-Public Use
  Company Number: None

PATIENT
  Age: 24 Year
  Sex: Female
  Weight: 77.1115 kg

DRUGS (1)
  1. VIOXX [Suspect]
     Indication: PAIN IN EXTREMITY
     Dosage: 1PILL   2 TWICE A DAY ORAL
     Route: 048
     Dates: start: 20040612, end: 20040712

REACTIONS (2)
  - HYPOAESTHESIA [None]
  - PARAESTHESIA [None]
